FAERS Safety Report 5382314-4 (Version None)
Quarter: 2007Q3

REPORT INFORMATION
  Report Type: 
  Country: None (occurrence: None)
  Receive Date: 20070709
  Receipt Date: 20070705
  Transmission Date: 20080115
  Serious: Yes (Hospitalization)
  Sender: FDA-Public Use
  Company Number: JP-ROXANE LABORATORIES, INC-2007-BP-16702RO

PATIENT
  Age: 57 Year
  Sex: Female

DRUGS (5)
  1. AZATHIOPRINE [Suspect]
     Indication: CROHN'S DISEASE
     Route: 048
     Dates: end: 20050101
  2. MESALAZINE [Suspect]
     Indication: CROHN'S DISEASE
     Route: 048
  3. PREDNISOLONE [Suspect]
     Indication: CROHN'S DISEASE
     Route: 048
  4. INFLIXIMAB [Suspect]
     Indication: CROHN'S DISEASE
     Dosage: 5 MG/KG X 2 DOSES (WEEKS 0 AND 2)
     Route: 042
     Dates: start: 20041006, end: 20041020
  5. INFLIXIMAB [Suspect]
     Dosage: 5 MG/KG X 2 DOSES (WEEKS 0 AND 2)
     Route: 042
     Dates: start: 20041227, end: 20050110

REACTIONS (12)
  - ABDOMINAL TENDERNESS [None]
  - CHEST X-RAY ABNORMAL [None]
  - COUGH [None]
  - DYSPNOEA [None]
  - HAEMATOCHEZIA [None]
  - LUNG ABSCESS [None]
  - LYMPHOCYTE COUNT DECREASED [None]
  - MALAISE [None]
  - PNEUMOCYSTIS JIROVECI PNEUMONIA [None]
  - PNEUMOTHORAX [None]
  - PYREXIA [None]
  - WHITE BLOOD CELL COUNT DECREASED [None]
